FAERS Safety Report 8854963 (Version 1)
Quarter: 2012Q4

REPORT INFORMATION
  Report Type: 
  Country: US (occurrence: US)
  Receive Date: 20121023
  Receipt Date: 20121023
  Transmission Date: 20130627
  Serious: Yes (Other)
  Sender: FDA-Public Use
  Company Number: US-PFIZER INC-2012262384

PATIENT
  Sex: Female

DRUGS (6)
  1. EFFEXOR XR [Suspect]
     Indication: MAJOR DEPRESSION
     Dosage: two 150mg at a time once a day
     Route: 048
  2. EFFEXOR XR [Suspect]
     Dosage: 300 mg, 1x/day
     Route: 048
     Dates: end: 2012
  3. EFFEXOR XR [Suspect]
     Dosage: 150 mg, 1x/day
     Route: 048
     Dates: start: 2012, end: 201209
  4. EFFEXOR XR [Suspect]
     Dosage: 75 mg, 1x/day
     Route: 048
     Dates: start: 201209
  5. VIIBRYD [Concomitant]
     Dosage: UNK
  6. LORAZEPAM [Concomitant]
     Dosage: UNK

REACTIONS (8)
  - Weight decreased [Unknown]
  - Withdrawal syndrome [Not Recovered/Not Resolved]
  - Nausea [Not Recovered/Not Resolved]
  - Abdominal pain upper [Not Recovered/Not Resolved]
  - Vomiting [Not Recovered/Not Resolved]
  - Diarrhoea [Not Recovered/Not Resolved]
  - Tremor [Not Recovered/Not Resolved]
  - Nightmare [Not Recovered/Not Resolved]
